FAERS Safety Report 16436680 (Version 1)
Quarter: 2019Q2

REPORT INFORMATION
  Report Type: Spontaneous
  Country: US (occurrence: US)
  Receive Date: 20190614
  Receipt Date: 20190614
  Transmission Date: 20190711
  Serious: No
  Sender: FDA-Public Use
  Company Number: US-JNJFOC-20170216437

PATIENT
  Age: 88 Year
  Sex: Female
  Weight: 81.19 kg

DRUGS (1)
  1. TYLENOL EXTRA STRENGTH [Suspect]
     Active Substance: ACETAMINOPHEN
     Indication: ARTHRITIS
     Dosage: 6 CAPLETS 2 IN THE MORNING 2 IN THE AFTERNOON AND TWO??BEFORE CALLING
     Route: 048
     Dates: start: 20170215, end: 20170215

REACTIONS (1)
  - Drug ineffective [Unknown]

NARRATIVE: CASE EVENT DATE: 20170215
